FAERS Safety Report 9000009 (Version 2)
Quarter: 2013Q1

REPORT INFORMATION
  Report Type: Spontaneous
  Country: US (occurrence: US)
  Receive Date: 20130102
  Receipt Date: 20130115
  Transmission Date: 20140127
  Serious: Yes (Disabling, Other)
  Sender: FDA-Public Use
  Company Number: US-PFIZER INC-2012332753

PATIENT
  Age: 52 Year
  Sex: Female
  Weight: 71.66 kg

DRUGS (5)
  1. LYRICA [Suspect]
     Indication: FIBROMYALGIA
     Dosage: 150 MG, 3X/DAY
     Dates: start: 2003
  2. CELEBREX [Suspect]
     Indication: ANKYLOSING SPONDYLITIS
     Dosage: UNK
  3. METHOTREXATE [Concomitant]
     Dosage: 25 MG, WEEKLY
  4. FENTANYL [Concomitant]
     Dosage: UNK
  5. ADVAIR DISKUS [Concomitant]
     Indication: CHRONIC OBSTRUCTIVE PULMONARY DISEASE
     Dosage: UNK

REACTIONS (5)
  - Ankylosing spondylitis [Unknown]
  - Back disorder [Unknown]
  - Musculoskeletal discomfort [Unknown]
  - Malaise [Unknown]
  - Nerve compression [Unknown]
